FAERS Safety Report 8437087-5 (Version None)
Quarter: 2012Q2

REPORT INFORMATION
  Report Type: 
  Country: None (occurrence: None)
  Receive Date: 20120614
  Receipt Date: 20120607
  Transmission Date: 20120825
  Serious: Yes (Other)
  Sender: FDA-Public Use
  Company Number: US-JNJFOC-20120603865

PATIENT
  Age: 59 Year
  Sex: Male
  Weight: 72.58 kg

DRUGS (5)
  1. CRESTOR [Concomitant]
     Indication: LIPIDS
     Route: 065
  2. STELARA [Suspect]
     Indication: PSORIASIS
     Route: 058
     Dates: start: 20111208, end: 20120201
  3. ELAVIL [Concomitant]
     Indication: MIGRAINE
     Route: 065
  4. TOPAMAX [Concomitant]
     Indication: MIGRAINE
     Route: 065
  5. SYNTHROID [Concomitant]
     Indication: THYROID DISORDER
     Route: 065

REACTIONS (3)
  - ARTHRALGIA [None]
  - OTOTOXICITY [None]
  - BLOOD THYROID STIMULATING HORMONE INCREASED [None]
